FAERS Safety Report 6014485-0 (Version None)
Quarter: 2008Q4

REPORT INFORMATION
  Report Type: 
  Country: None (occurrence: None)
  Receive Date: 20081219
  Receipt Date: 20080915
  Transmission Date: 20090506
  Serious: No
  Sender: FDA-Public Use
  Company Number: A0737728A

PATIENT
  Age: 64 Year
  Sex: Male
  Weight: 72.7 kg

DRUGS (6)
  1. AVODART [Suspect]
     Indication: BENIGN PROSTATIC HYPERPLASIA
     Dosage: .5MG PER DAY
     Route: 048
     Dates: start: 20061204
  2. METFORMIN HCL [Concomitant]
  3. QUINAPRIL [Concomitant]
  4. FLOMAX [Concomitant]
  5. LIPITOR [Concomitant]
  6. PRILOSEC [Concomitant]

REACTIONS (2)
  - MEDICATION RESIDUE [None]
  - PRODUCT QUALITY ISSUE [None]
